FAERS Safety Report 7876719 (Version 12)
Quarter: 2013Q2

REPORT INFORMATION
  Report Type: Report from Study
  Country: US (occurrence: US)
  Receive Date: 20110329
  Receipt Date: 20130501
  Transmission Date: 20140414
  Serious: Yes (Hospitalization, Other)
  Sender: FDA-Public Use
  Company Number: US-GILEAD-2011-0037953

PATIENT
  Age: 65 Year
  Sex: Female

DRUGS (15)
  1. RANOLAZINE [Suspect]
     Indication: ANGINA PECTORIS
     Dosage: 1000 MG, UNK
     Dates: start: 20110202, end: 20110217
  2. SAXAGLIPTIN [Suspect]
     Indication: TYPE 2 DIABETES MELLITUS
     Dates: start: 20101019
  3. NOVOLOG [Suspect]
     Indication: TYPE 2 DIABETES MELLITUS
     Dosage: 30 IU, UNK
     Dates: start: 20090518
  4. LANTUS [Suspect]
     Indication: TYPE 2 DIABETES MELLITUS
     Dosage: 180 UNK, UNK
     Dates: start: 20090601
  5. ACTOS [Suspect]
     Indication: TYPE 2 DIABETES MELLITUS
     Dates: start: 20101215, end: 20110211
  6. VOLTAREN [Suspect]
     Dates: end: 20110211
  7. INSULIN LISPRO [Suspect]
     Indication: TYPE 2 DIABETES MELLITUS
     Dosage: 1 UNK, UNK
     Dates: start: 20110202, end: 20110217
  8. ASPIRIN [Concomitant]
  9. NITRATES [Concomitant]
  10. HYDRALAZINE [Concomitant]
     Dates: start: 20110202, end: 20110202
  11. NORMAL SALINE [Concomitant]
     Dates: start: 20110202, end: 20110204
  12. MORPHINE [Concomitant]
     Dates: start: 20110202, end: 20110203
  13. HUMALOG [Concomitant]
     Dates: start: 20110215, end: 20110217
  14. LASIX [Concomitant]
     Dates: start: 20110202, end: 20110204
  15. NITROGLYCERINE [Concomitant]

REACTIONS (5)
  - Renal failure acute [Recovered/Resolved with Sequelae]
  - Asthma [Recovered/Resolved]
  - Reflux gastritis [Recovered/Resolved]
  - Suicidal ideation [Recovered/Resolved]
  - Non-cardiac chest pain [Recovered/Resolved]
